FAERS Safety Report 5241068-2 (Version None)
Quarter: 2007Q1

REPORT INFORMATION
  Report Type: 
  Country: None (occurrence: None)
  Receive Date: 20070214
  Receipt Date: 20070214
  Transmission Date: 20070707
  Serious: Yes (Hospitalization)
  Sender: FDA-Public Use
  Company Number: None

PATIENT
  Age: 51 Year
  Sex: Female
  Weight: 80.7403 kg

DRUGS (2)
  1. PHENYTOIN SODIUM CAP [Suspect]
     Indication: CONVULSION
     Dosage: 200 MG  TID  PO
     Route: 048
     Dates: start: 20061201, end: 20070121
  2. ESCITALOPRAM    10MG [Suspect]
     Indication: ANTIDEPRESSANT THERAPY
     Dosage: 10 MG  DAILY  PO
     Route: 048
     Dates: start: 20061201, end: 20070124

REACTIONS (3)
  - DRUG INTERACTION [None]
  - DRUG TOXICITY [None]
  - MENTAL STATUS CHANGES [None]
